FAERS Safety Report 4588113-5 (Version None)
Quarter: 2005Q1

REPORT INFORMATION
  Report Type: 
  Country: None (occurrence: None)
  Receive Date: 20050216
  Receipt Date: 20050131
  Transmission Date: 20050727
  Serious: Yes (Other)
  Sender: FDA-Public Use
  Company Number: CA_050207709

PATIENT
  Sex: Female

DRUGS (1)
  1. EVISTA [Suspect]
     Dates: start: 20021001

REACTIONS (5)
  - BONE NEOPLASM [None]
  - ENDOMETRIAL CANCER [None]
  - PATHOLOGICAL FRACTURE [None]
  - POSTMENOPAUSAL HAEMORRHAGE [None]
  - THORACIC VERTEBRAL FRACTURE [None]
